FAERS Safety Report 14785280 (Version 1)
Quarter: 2018Q2

REPORT INFORMATION
  Report Type: Spontaneous
  Country: ES (occurrence: ES)
  Receive Date: 20180420
  Receipt Date: 20180420
  Transmission Date: 20180711
  Serious: Yes (Life-Threatening, Hospitalization)
  Sender: FDA-Public Use
  Company Number: ES-JNJFOC-20180421122

PATIENT
  Age: 2 Year
  Sex: Female

DRUGS (1)
  1. FENTANYL. [Suspect]
     Active Substance: FENTANYL
     Indication: PRODUCT USED FOR UNKNOWN INDICATION
     Dosage: FOR AT LEAST 2-3 HOURS
     Route: 065

REACTIONS (4)
  - Metabolic acidosis [Unknown]
  - Hyperglycaemia [Unknown]
  - Toxicity to various agents [Recovering/Resolving]
  - Drug diversion [Unknown]
